FAERS Safety Report 5202807-X (Version None)
Quarter: 2006Q4

REPORT INFORMATION
  Report Type: 
  Country: None (occurrence: None)
  Receive Date: 20061016
  Receipt Date: 20060814
  Transmission Date: 20070319
  Serious: No
  Sender: FDA-Public Use
  Company Number: 2006SP003017

PATIENT
  Age: 34 Year
  Sex: Female
  Weight: 86.1834 kg

DRUGS (6)
  1. LUNESTA [Suspect]
     Indication: INSOMNIA
     Dosage: 3 MG;HS; ORAL
     Route: 048
     Dates: start: 20060729, end: 20060817
  2. ZANTAC [Concomitant]
  3. GUIATUSS [Concomitant]
  4. MAXZIDE [Concomitant]
  5. ZYRTEC [Concomitant]
  6. FLUOXETINE [Concomitant]

REACTIONS (1)
  - DYSGEUSIA [None]
